FAERS Safety Report 4781164-7 (Version None)
Quarter: 2005Q3

REPORT INFORMATION
  Report Type: 
  Country: None (occurrence: None)
  Receive Date: 20050926
  Receipt Date: 20050915
  Transmission Date: 20060218
  Serious: Yes (Other)
  Sender: FDA-Public Use
  Company Number: 2005-09-0791

PATIENT
  Age: 63 Year
  Sex: Male

DRUGS (1)
  1. LORATADINE [Suspect]
     Dosage: 1/QD ORAL
     Route: 048
     Dates: end: 20050624

REACTIONS (1)
  - ATRIAL FIBRILLATION [None]
